FAERS Safety Report 15474521 (Version 2)
Quarter: 2018Q4

REPORT INFORMATION
  Report Type: Spontaneous
  Country: US (occurrence: US)
  Receive Date: 20181008
  Receipt Date: 20181012
  Transmission Date: 20190205
  Serious: Yes (Hospitalization, Other)
  Sender: FDA-Public Use
  Company Number: US-009507513-0710USA00904

PATIENT
  Age: 65 Year
  Sex: Female

DRUGS (13)
  1. GEMFIBROZIL. [Concomitant]
     Active Substance: GEMFIBROZIL
  2. CLONIDINE. [Concomitant]
     Active Substance: CLONIDINE
  3. HYDROCHLOROTHIAZIDE. [Concomitant]
     Active Substance: HYDROCHLOROTHIAZIDE
  4. NEXIUM [Concomitant]
     Active Substance: ESOMEPRAZOLE MAGNESIUM
  5. TRIAMTERENE. [Concomitant]
     Active Substance: TRIAMTERENE
  6. GLUCOPHAGE [Concomitant]
     Active Substance: METFORMIN HYDROCHLORIDE
  7. CUBICIN [Suspect]
     Active Substance: DAPTOMYCIN
     Indication: OSTEOMYELITIS
  8. LIPITOR [Concomitant]
     Active Substance: ATORVASTATIN CALCIUM
  9. LOTREL [Concomitant]
     Active Substance: AMLODIPINE BESYLATE\BENAZEPRIL HYDROCHLORIDE
  10. CUBICIN [Suspect]
     Active Substance: DAPTOMYCIN
     Indication: MENINGITIS
     Dosage: 750 MG, QD
     Route: 042
     Dates: start: 20070904, end: 20070914
  11. TOPROL XL [Concomitant]
     Active Substance: METOPROLOL SUCCINATE
  12. COUMADIN [Concomitant]
     Active Substance: WARFARIN SODIUM
  13. TRICOR [Concomitant]
     Active Substance: FENOFIBRATE

REACTIONS (4)
  - Aspartate aminotransferase increased [Unknown]
  - Myalgia [Recovering/Resolving]
  - Rhabdomyolysis [Recovered/Resolved]
  - Alanine aminotransferase increased [Unknown]

NARRATIVE: CASE EVENT DATE: 20070913
